FAERS Safety Report 10598302 (Version 1)
Quarter: 2014Q4

REPORT INFORMATION
  Report Type: Spontaneous
  Country: CA (occurrence: None)
  Receive Date: 20141119
  Receipt Date: 20141119
  Transmission Date: 20150529
  Serious: Yes (Other)
  Sender: FDA-Public Use
  Company Number: AMAG201400431

PATIENT
  Age: 70 Year
  Sex: Female
  Weight: 68.5 kg

DRUGS (1)
  1. FERAHEME [Suspect]
     Active Substance: FERUMOXYTOL NON-STOICHIOMETRIC MAGNETITE
     Indication: IRON DEFICIENCY ANAEMIA
     Dosage: SINGLE GIVEN OVER 90 SECONDS
     Route: 042
     Dates: start: 20141029, end: 20141029

REACTIONS (17)
  - Angioedema [None]
  - Arthralgia [None]
  - Hypersensitivity [None]
  - Urticaria [None]
  - Seizure [None]
  - Hypotension [None]
  - Skin lesion [None]
  - Rash [None]
  - Vomiting [None]
  - Macule [None]
  - Anxiety [None]
  - Nausea [None]
  - Oedema peripheral [None]
  - Blood pressure decreased [None]
  - Pruritus generalised [None]
  - Face oedema [None]
  - Loss of consciousness [None]

NARRATIVE: CASE EVENT DATE: 20141029
